FAERS Safety Report 13046577 (Version 1)
Quarter: 2016Q4

REPORT INFORMATION
  Report Type: Report from Study
  Country: None (occurrence: BR)
  Receive Date: 20161220
  Receipt Date: 20161220
  Transmission Date: 20170207
  Serious: Yes (Death, Hospitalization, Other)
  Sender: FDA-Public Use
  Company Number: BR-ABBVIE-16K-020-1687717-00

PATIENT
  Age: 63 Year
  Sex: Male
  Weight: 126 kg

DRUGS (4)
  1. HUMIRA [Suspect]
     Active Substance: ADALIMUMAB
     Indication: RHEUMATOID ARTHRITIS
     Route: 058
     Dates: start: 20090614, end: 20161106
  2. PREDNISONE. [Concomitant]
     Active Substance: PREDNISONE
     Indication: OSTEOARTHRITIS
  3. ENALAMED [Concomitant]
     Indication: HYPERTENSION
     Route: 048
     Dates: start: 2007
  4. PREDNISONE. [Concomitant]
     Active Substance: PREDNISONE
     Indication: ARTHRITIS
     Route: 048
     Dates: start: 1996

REACTIONS (11)
  - Urinary tract infection [Fatal]
  - Plasma protein metabolism disorder [Unknown]
  - Adverse event [Not Recovered/Not Resolved]
  - Swelling [Unknown]
  - Multi-vitamin deficiency [Unknown]
  - Acute kidney injury [Fatal]
  - Asthenia [Unknown]
  - Weight increased [Unknown]
  - Pain [Unknown]
  - Fluid retention [Not Recovered/Not Resolved]
  - Septic shock [Fatal]

NARRATIVE: CASE EVENT DATE: 201604
